FAERS Safety Report 8644911 (Version 3)
Quarter: 2016Q1

REPORT INFORMATION
  Report Type: Spontaneous
  Country: US (occurrence: US)
  Receive Date: 20120702
  Receipt Date: 20160211
  Transmission Date: 20160526
  Serious: Yes (Hospitalization, Other)
  Sender: FDA-Public Use
  Company Number: US-ELI_LILLY_AND_COMPANY-US201206006831

PATIENT
  Age: 70 Year
  Sex: Female

DRUGS (14)
  1. HUMULIN R [Suspect]
     Active Substance: INSULIN HUMAN
     Indication: TYPE 2 DIABETES MELLITUS
     Dosage: UNK UNK, PRN
     Route: 065
  2. BUMETANIDE. [Concomitant]
     Active Substance: BUMETANIDE
     Indication: FLUID RETENTION
  3. LISINOPRIL. [Concomitant]
     Active Substance: LISINOPRIL
  4. ASPIRIN                            /00346701/ [Concomitant]
     Active Substance: ASCORBIC ACID\ASPIRIN
     Indication: PRODUCT USED FOR UNKNOWN INDICATION
     Dosage: 81 MG, UNKNOWN
  5. HUMULIN N [Suspect]
     Active Substance: INSULIN HUMAN
     Indication: TYPE 2 DIABETES MELLITUS
     Route: 065
  6. ALLOPURINOL. [Concomitant]
     Active Substance: ALLOPURINOL
  7. HYDROCODONE BITARTRATE AND ACETAMINOPHEN [Concomitant]
     Active Substance: ACETAMINOPHEN\HYDROCODONE BITARTRATE
     Dosage: UNK
     Dates: start: 2002
  8. HUMULIN N [Suspect]
     Active Substance: INSULIN HUMAN
     Dosage: 30 U, EACH EVENING
     Route: 065
  9. LANTUS [Concomitant]
     Active Substance: INSULIN GLARGINE
     Dosage: 52 U, UNKNOWN
  10. KLOR-CON [Concomitant]
     Active Substance: POTASSIUM CHLORIDE
  11. HUMULIN N [Suspect]
     Active Substance: INSULIN HUMAN
     Indication: TYPE 2 DIABETES MELLITUS
     Dosage: 50 U, EACH MORNING
     Route: 065
     Dates: start: 2010
  12. LIPITOR [Concomitant]
     Active Substance: ATORVASTATIN CALCIUM
  13. METOPROLOL. [Concomitant]
     Active Substance: METOPROLOL
  14. GABAPENTIN. [Concomitant]
     Active Substance: GABAPENTIN

REACTIONS (23)
  - Periarthritis [Unknown]
  - Incorrect drug administration duration [Unknown]
  - Visual acuity reduced [Unknown]
  - Fall [Unknown]
  - Osteoarthritis [Unknown]
  - Blood glucose decreased [Unknown]
  - Hip fracture [Unknown]
  - Palpitations [Unknown]
  - Malaise [Unknown]
  - Weight decreased [Unknown]
  - Hip fracture [Unknown]
  - Blepharospasm [Unknown]
  - Blood glucose increased [Unknown]
  - Wrist fracture [Unknown]
  - Upper limb fracture [Unknown]
  - Cardiac disorder [Unknown]
  - Fluid retention [Unknown]
  - Stress [Not Recovered/Not Resolved]
  - Injection site haemorrhage [Unknown]
  - Fall [Unknown]
  - Arthritis [Not Recovered/Not Resolved]
  - Renal failure [Unknown]
  - Underdose [Unknown]

NARRATIVE: CASE EVENT DATE: 201106
